FAERS Safety Report 24591415 (Version 2)
Quarter: 2024Q4

REPORT INFORMATION
  Report Type: Spontaneous
  Country: DE (occurrence: DE)
  Receive Date: 20241108
  Receipt Date: 20241211
  Transmission Date: 20250114
  Serious: Yes (Other)
  Sender: Kenvue
  Company Number: DE-KENVUE-20241100308

PATIENT

DRUGS (1)
  1. MINOXIDIL [Suspect]
     Active Substance: MINOXIDIL
     Indication: Product used for unknown indication
     Dosage: 2 TIMES A DAY IN THE MORNING AND  IN THE EVENING WITH THREE HUBS EACH TIME
     Route: 065

REACTIONS (7)
  - Suicidal ideation [Recovering/Resolving]
  - Incorrect dose administered [Unknown]
  - Major depression [Recovering/Resolving]
  - Mental disorder [Recovering/Resolving]
  - Pseudodementia [Recovering/Resolving]
  - Tremor [Not Recovered/Not Resolved]
  - Cerebral disorder [Not Recovered/Not Resolved]
